FAERS Safety Report 8460181 (Version 2)
Quarter: 2012Q4

REPORT INFORMATION
  Report Type: 
  Country: US (occurrence: US)
  Receive Date: 20120315
  Receipt Date: 20121023
  Transmission Date: 20130627
  Serious: Yes (Hospitalization)
  Sender: FDA-Public Use
  Company Number: US-BAYER-2012-023560

PATIENT
  Age: 15 Year
  Sex: Female
  Weight: 93 kg

DRUGS (8)
  1. YASMIN [Suspect]
     Indication: DYSMENORRHOEA
     Dosage: UNK
     Dates: start: 20100823, end: 20101004
  2. VICODIN [Concomitant]
     Indication: PAIN
  3. MORPHIN [Concomitant]
     Indication: PAIN
  4. KETOROLAC [Concomitant]
     Indication: PAIN
  5. IBUPROFEN [Concomitant]
     Dosage: occasional use
     Route: 048
  6. TYLENOL [Concomitant]
     Indication: HEADACHE
  7. YAZ [Suspect]
     Dosage: UNK
     Dates: start: 20100823, end: 20101004
  8. OCELLA [Suspect]
     Dosage: UNK
     Dates: start: 20100823, end: 20101004

REACTIONS (7)
  - Pulmonary embolism [None]
  - Injury [None]
  - Pain [None]
  - Emotional distress [None]
  - General physical health deterioration [None]
  - Anxiety [None]
  - Pain [None]
